FAERS Safety Report 24907857 (Version 1)
Quarter: 2025Q1

REPORT INFORMATION
  Report Type: Spontaneous
  Country: US (occurrence: US)
  Receive Date: 20250131
  Receipt Date: 20250131
  Transmission Date: 20250408
  Serious: No
  Sender: ROCHE
  Company Number: US-ROCHE-10000173768

PATIENT
  Sex: Female

DRUGS (1)
  1. ACTEMRA ACTPEN [Suspect]
     Active Substance: TOCILIZUMAB
     Indication: Product used for unknown indication
     Route: 058

REACTIONS (7)
  - Product quality issue [Unknown]
  - Device issue [Unknown]
  - No adverse event [Unknown]
  - Device malfunction [Unknown]
  - Intercepted product storage error [Unknown]
  - Device use error [Unknown]
  - Product dose omission issue [Unknown]
